FAERS Safety Report 5963804-X (Version None)
Quarter: 2008Q4

REPORT INFORMATION
  Report Type: 
  Country: None (occurrence: None)
  Receive Date: 20081121
  Receipt Date: 20081121
  Transmission Date: 20090506
  Serious: Yes (Hospitalization)
  Sender: FDA-Public Use
  Company Number: None

PATIENT
  Sex: Male
  Weight: 103 kg

DRUGS (5)
  1. ABRAXANE [Suspect]
     Indication: NEOPLASM MALIGNANT
     Dosage: 200 MG D1,D8,D15/CYCLE 042
     Dates: start: 20080707, end: 20081103
  2. VANDETANIB [Suspect]
     Indication: NEOPLASM MALIGNANT
     Dosage: 100 MG QDX28DAYS/CYCLE 047
     Dates: start: 20080707, end: 20081110
  3. LOSARTAN POTASSIUM [Concomitant]
  4. ASPIRIN [Concomitant]
  5. IMODIUM [Concomitant]

REACTIONS (5)
  - BACTERAEMIA [None]
  - BLOOD CULTURE POSITIVE [None]
  - FATIGUE [None]
  - MALAISE [None]
  - PYREXIA [None]
